FAERS Safety Report 17166298 (Version 1)
Quarter: 2019Q4

REPORT INFORMATION
  Report Type: Spontaneous
  Country: IT (occurrence: IT)
  Receive Date: 20191217
  Receipt Date: 20191217
  Transmission Date: 20200122
  Serious: Yes (Other)
  Sender: FDA-Public Use
  Company Number: IT-MYLANLABS-2019M1125803

PATIENT
  Age: 75 Year
  Sex: Male

DRUGS (3)
  1. LEVETIRACETAM. [Suspect]
     Active Substance: LEVETIRACETAM
     Indication: PRODUCT USED FOR UNKNOWN INDICATION
     Route: 065
  2. VALGANCICLOVIR. [Suspect]
     Active Substance: VALGANCICLOVIR
     Dosage: 450 MILLIGRAM, QD
     Route: 065
     Dates: start: 20171106, end: 20171112
  3. VALGANCICLOVIR. [Suspect]
     Active Substance: VALGANCICLOVIR
     Indication: DISSEMINATED CYTOMEGALOVIRAL INFECTION
     Dosage: 900 MILLIGRAM, QD
     Route: 065
     Dates: start: 20171021, end: 20171028

REACTIONS (2)
  - Hallucination [Recovered/Resolved]
  - Neutropenia [Unknown]
